FAERS Safety Report 8398678-3 (Version None)
Quarter: 2012Q2

REPORT INFORMATION
  Report Type: 
  Country: None (occurrence: None)
  Receive Date: 20120531
  Receipt Date: 20120503
  Transmission Date: 20120825
  Serious: No
  Sender: FDA-Public Use
  Company Number: US-BAYER-2012-048706

PATIENT

DRUGS (4)
  1. ACETAMINOPHEN [Concomitant]
     Indication: HEADACHE
  2. ALEVE (CAPLET) [Suspect]
     Indication: HEADACHE
     Dosage: 2 DF, UNK
     Route: 048
  3. DILAUDID [Concomitant]
     Indication: HEADACHE
  4. IBUPROFEN [Concomitant]
     Indication: HEADACHE
     Dosage: 2 DF, UNK
     Route: 048

REACTIONS (1)
  - HEADACHE [None]
